FAERS Safety Report 15261981 (Version 3)
Quarter: 2018Q3

REPORT INFORMATION
  Report Type: Spontaneous
  Country: DE (occurrence: DE)
  Receive Date: 20180809
  Receipt Date: 20180907
  Transmission Date: 20181010
  Serious: Yes (Other)
  Sender: FDA-Public Use
  Company Number: DE-PFIZER INC-2018317355

PATIENT
  Age: 35 Year
  Sex: Female
  Weight: 54 kg

DRUGS (10)
  1. NEPRESOL /00007602/ [Suspect]
     Active Substance: HYDRALAZINE HYDROCHLORIDE
     Dosage: 50 MG, QD (0. ? 20.6. GESTATIONAL WEEK)
     Route: 048
     Dates: start: 20180504
  2. METOPROLOL SUCCINATE. [Suspect]
     Active Substance: METOPROLOL SUCCINATE
     Indication: HYPERTENSION
     Dosage: 190 [MG/D ]/ INITIA 2 X 95MG/D, THEN DOSAGE DECREASE TO 2 X 47.5MG/D (0. ? 20.6. GESTATIONAL WEEK)
     Route: 048
     Dates: start: 20171209, end: 20180504
  3. MIFEGYNE [Concomitant]
     Active Substance: MIFEPRISTONE
     Indication: ABORTION INDUCED
     Dosage: UNK (20.4. ? 20.5. GESTATIONAL WEEK)
     Route: 048
     Dates: start: 20180502, end: 20180503
  4. TORASEMIDE [Concomitant]
     Active Substance: TORSEMIDE
     Indication: HYPERTENSION
     Dosage: UNK (0. ? 5.2. GESTATIONAL WEEK)
     Route: 048
  5. PANTOPRAZOLE [Suspect]
     Active Substance: PANTOPRAZOLE
     Indication: GASTRITIS PROPHYLAXIS
     Dosage: 40 MG, QD (0. ? 13.5. GESTATIONAL WEEK)
     Route: 048
  6. LAMOTRIGINE. [Suspect]
     Active Substance: LAMOTRIGINE
     Indication: EPILEPSY
     Dosage: 100 [MG/D ]/ 50 TO 100 MG/D (0. ? 20.6. GESTATIONAL WEEK )
     Route: 048
     Dates: start: 20171209, end: 20180504
  7. CERGEM [Concomitant]
     Active Substance: GEMEPROST
     Indication: ABORTION INDUCED
     Dosage: UNK (20.4. ? 20.5. GESTATIONAL WEEK)
     Route: 067
     Dates: start: 20180502, end: 20180503
  8. CANDESARTAN CILEXETIL. [Suspect]
     Active Substance: CANDESARTAN CILEXETIL
     Indication: HYPERTENSION
     Dosage: 32 MG, QD (0. ? 9.5. GESTATIONAL WEEK)
     Route: 048
  9. DORZOLAMIDE [Concomitant]
     Active Substance: DORZOLAMIDE
     Indication: GLAUCOMA
     Dosage: UNK (18.1. ? 20.6. GESTATIONAL WEEK)
     Route: 047
  10. NEPRESOL /00007602/ [Suspect]
     Active Substance: HYDRALAZINE HYDROCHLORIDE
     Indication: HYPERTENSION
     Dosage: 50 MG, QD (0. ? 20.6. GESTATIONAL WEEK)
     Route: 048
     Dates: start: 20171209, end: 20180504

REACTIONS (1)
  - Oligohydramnios [Recovered/Resolved]
